FAERS Safety Report 5305098-4 (Version None)
Quarter: 2007Q2

REPORT INFORMATION
  Report Type: 
  Country: None (occurrence: None)
  Receive Date: 20070417
  Receipt Date: 20070409
  Transmission Date: 20071010
  Serious: Yes (Death, Hospitalization)
  Sender: FDA-Public Use
  Company Number: 163-21880-07030734

PATIENT
  Age: 69 Year
  Sex: Male

DRUGS (6)
  1. REVLIMID [Suspect]
     Indication: MULTIPLE MYELOMA
     Dosage: 10 MG, 1 IN 1 D; ORAL
     Route: 048
     Dates: start: 20061109, end: 20061118
  2. SYNTHROID [Concomitant]
  3. PROTONIX [Concomitant]
  4. UROXATRAL [Concomitant]
  5. AMBIEN [Concomitant]
  6. PERCOCET [Concomitant]

REACTIONS (10)
  - ARRHYTHMIA [None]
  - ASTHENIA [None]
  - CONFUSIONAL STATE [None]
  - DISEASE PROGRESSION [None]
  - FATIGUE [None]
  - MENTAL IMPAIRMENT [None]
  - METASTASES TO BONE [None]
  - MULTIPLE MYELOMA [None]
  - OSTEOLYSIS [None]
  - PANCYTOPENIA [None]
